FAERS Safety Report 24136428 (Version 2)
Quarter: 2024Q3

REPORT INFORMATION
  Report Type: Spontaneous
  Country: CN (occurrence: CN)
  Receive Date: 20240725
  Receipt Date: 20240802
  Transmission Date: 20241017
  Serious: Yes (Hospitalization, Other)
  Sender: RANBAXY
  Company Number: CN-SUN PHARMACEUTICAL INDUSTRIES LTD-2024R1-458363

PATIENT
  Age: 7 Year
  Sex: Male
  Weight: 40 kg

DRUGS (3)
  1. PREDNISONE [Suspect]
     Active Substance: PREDNISONE
     Indication: Adrenocortical steroid therapy
     Dosage: 10 MILLIGRAM, TID
     Route: 065
  2. PREDNISONE [Suspect]
     Active Substance: PREDNISONE
     Indication: Still^s disease
  3. METHOTREXATE [Concomitant]
     Active Substance: METHOTREXATE
     Indication: Still^s disease
     Dosage: 10 MILLIGRAM, WEEKLY
     Route: 065

REACTIONS (7)
  - Osteoporosis [Unknown]
  - Weight increased [Recovering/Resolving]
  - Hyperlipidaemia [Unknown]
  - Multiple fractures [Unknown]
  - Toxicity to various agents [Unknown]
  - Coagulopathy [Unknown]
  - Cushing^s syndrome [Unknown]
